FAERS Safety Report 6026734-3 (Version None)
Quarter: 2009Q1

REPORT INFORMATION
  Report Type: 
  Country: None (occurrence: None)
  Receive Date: 20090104
  Receipt Date: 20081223
  Transmission Date: 20090719
  Serious: Yes (Hospitalization)
  Sender: FDA-Public Use
  Company Number: US-ELI_LILLY_AND_COMPANY-US200812005699

PATIENT
  Sex: Female

DRUGS (4)
  1. FORTEO [Suspect]
     Dosage: DURING THE DAY
     Dates: start: 20070101, end: 20081201
  2. HUMALOG [Suspect]
     Indication: DIABETES MELLITUS
     Dosage: DURING THE DAY
  3. HUMALOG [Suspect]
  4. LANTUS [Concomitant]
     Dosage: UNK, EACH EVENING

REACTIONS (1)
  - APPENDICECTOMY [None]
